FAERS Safety Report 20180067 (Version 3)
Quarter: 2022Q1

REPORT INFORMATION
  Report Type: Other
  Country: IT (occurrence: None)
  Receive Date: 20211214
  Receipt Date: 20220107
  Transmission Date: 20220423
  Serious: Yes (Other)
  Sender: FDA-Public Use
  Company Number: IT-ROCHE-2907420

PATIENT
  Age: 61 Year

DRUGS (1)
  1. ADO-TRASTUZUMAB EMTANSINE [Suspect]
     Active Substance: ADO-TRASTUZUMAB EMTANSINE
     Indication: Breast cancer
     Route: 065
     Dates: start: 20210715, end: 20211209

REACTIONS (3)
  - Diarrhoea [Unknown]
  - Hepatic necrosis [Recovered/Resolved]
  - Peripheral motor neuropathy [Unknown]

NARRATIVE: CASE EVENT DATE: 20210805
